FAERS Safety Report 18657782 (Version 2)
Quarter: 2021Q1

REPORT INFORMATION
  Report Type: Report from Study
  Country: FR (occurrence: FR)
  Receive Date: 20201224
  Receipt Date: 20210122
  Transmission Date: 20210419
  Serious: Yes (Hospitalization)
  Sender: FDA-Public Use
  Company Number: FR-EXELIXIS-XL18420036171

PATIENT
  Age: 73 Year
  Sex: Male

DRUGS (12)
  1. XL184 [Suspect]
     Active Substance: CABOZANTINIB
     Indication: THYROID CANCER
     Dosage: 60 MG, QD
     Route: 048
     Dates: start: 20200507
  2. XATRAL [Concomitant]
     Active Substance: ALFUZOSIN
  3. LEVOTHYROX [Concomitant]
     Active Substance: LEVOTHYROXINE
  4. DOLIPRANE [Concomitant]
     Active Substance: ACETAMINOPHEN
  5. SEROPRAM [Concomitant]
  6. XGEVA [Concomitant]
     Active Substance: DENOSUMAB
  7. DUROGESIC [Concomitant]
     Active Substance: FENTANYL
  8. OXYNORM [Concomitant]
     Active Substance: OXYCODONE HYDROCHLORIDE
  9. IMOVANE [Concomitant]
     Active Substance: ZOPICLONE
  10. MACROGOL [Concomitant]
     Active Substance: POLYETHYLENE GLYCOLS
  11. DEXERIL [Concomitant]
  12. XL184 [Suspect]
     Active Substance: CABOZANTINIB
     Dosage: 20 MG, QD
     Route: 048
     Dates: end: 20201215

REACTIONS (1)
  - Cementoplasty [Recovered/Resolved]

NARRATIVE: CASE EVENT DATE: 20201217
